FAERS Safety Report 5167633-9 (Version None)
Quarter: 2006Q4

REPORT INFORMATION
  Report Type: 
  Country: None (occurrence: None)
  Receive Date: 20061204
  Receipt Date: 20061204
  Transmission Date: 20070319
  Serious: No
  Sender: FDA-Public Use
  Company Number: None

PATIENT
  Age: 20 Year
  Sex: Male
  Weight: 84.8226 kg

DRUGS (1)
  1. LEVAQUIN [Suspect]
     Indication: URETHRITIS CHLAMYDIAL
     Dosage: 1 TABLET DAILY PO
     Route: 048
     Dates: start: 20061129, end: 20061129

REACTIONS (1)
  - ANAPHYLACTIC REACTION [None]
